FAERS Safety Report 5927328-8 (Version None)
Quarter: 2008Q4

REPORT INFORMATION
  Report Type: 
  Country: None (occurrence: None)
  Receive Date: 20081020
  Receipt Date: 20081003
  Transmission Date: 20090506
  Serious: Yes (Other)
  Sender: FDA-Public Use
  Company Number: 08-467

PATIENT
  Age: 22 Year
  Sex: Male

DRUGS (1)
  1. ALEVE [Suspect]
     Indication: INTENTIONAL OVERDOSE
     Dosage: ONCE, ORAL
     Route: 048
     Dates: start: 20080902

REACTIONS (2)
  - INCORRECT DOSE ADMINISTERED [None]
  - SELF INJURIOUS BEHAVIOUR [None]
